FAERS Safety Report 4609420-3 (Version None)
Quarter: 2005Q1

REPORT INFORMATION
  Report Type: 
  Country: None (occurrence: None)
  Receive Date: 20050314
  Receipt Date: 20050228
  Transmission Date: 20050727
  Serious: Yes (Disabling)
  Sender: FDA-Public Use
  Company Number: SGB1-2005-00008

PATIENT
  Age: 50 Year
  Sex: Male

DRUGS (1)
  1. ANAGRELIDE HCL [Suspect]
     Indication: ESSENTIAL THROMBOCYTHAEMIA
     Dosage: 0.5 MG, 2X/DAY:BID
     Dates: end: 20050105

REACTIONS (1)
  - HEADACHE [None]
